FAERS Safety Report 10021416 (Version 1)
Quarter: 2014Q1

REPORT INFORMATION
  Report Type: Spontaneous
  Country: IN (occurrence: None)
  Receive Date: 20140313
  Receipt Date: 20140313
  Transmission Date: 20141002
  Serious: Yes (Other)
  Sender: FDA-Public Use
  Company Number: IPC201403-000108

PATIENT
  Age: 55 Year
  Sex: Male

DRUGS (2)
  1. ATENOLOL (ATENOLOL) (ATENOLOL) [Suspect]
     Indication: HYPERTENSION
     Route: 048
  2. AMLODIPINE BESILATE (AMLODIPINE BESILATE) (AMLODIPINE BESILATE) [Suspect]
     Indication: HYPERTENSION
     Route: 048

REACTIONS (11)
  - Hepatotoxicity [None]
  - Local swelling [None]
  - Abdominal distension [None]
  - Nausea [None]
  - Vomiting [None]
  - Malaise [None]
  - Decreased appetite [None]
  - Fatigue [None]
  - Abdominal discomfort [None]
  - Jaundice [None]
  - Hepatomegaly [None]
